FAERS Safety Report 5490945-6 (Version None)
Quarter: 2007Q4

REPORT INFORMATION
  Report Type: 
  Country: None (occurrence: None)
  Receive Date: 20071019
  Receipt Date: 20071008
  Transmission Date: 20080405
  Serious: Yes (Other)
  Sender: FDA-Public Use
  Company Number: US-PFIZER INC-2007086152

PATIENT
  Sex: Female
  Weight: 47.727 kg

DRUGS (4)
  1. CHANTIX [Suspect]
     Indication: SMOKING CESSATION THERAPY
     Route: 048
     Dates: start: 20070728, end: 20071001
  2. PROZAC [Concomitant]
     Dosage: DAILY DOSE:10MG-FREQ:DAILY
  3. CELEXA [Concomitant]
  4. VITAMINS [Concomitant]

REACTIONS (6)
  - ANXIETY [None]
  - CONSTIPATION [None]
  - FEELING ABNORMAL [None]
  - INSOMNIA [None]
  - IRRITABILITY [None]
  - MANIA [None]
